FAERS Safety Report 9925536 (Version 2)
Quarter: 2014Q1

REPORT INFORMATION
  Report Type: Spontaneous
  Country: US (occurrence: US)
  Receive Date: 20140226
  Receipt Date: 20140314
  Transmission Date: 20141002
  Serious: Yes (Hospitalization)
  Sender: FDA-Public Use
  Company Number: US-009507513-1402USA011471

PATIENT
  Age: 48 Year
  Sex: Female

DRUGS (6)
  1. DULERA [Suspect]
     Indication: ASTHMA
     Dosage: 200MCG/5MCG 1 STANDARD DOSE OF 13, 2 INHALATION BID ORAL INHALATION
     Route: 055
     Dates: start: 201308, end: 20140219
  2. DULERA [Suspect]
     Dosage: 2 INHALATION BID ORAL INHALATION
     Route: 055
     Dates: start: 20140221
  3. SINGULAIR [Concomitant]
  4. FLUTICASONE [Concomitant]
  5. ZYRTEC [Concomitant]
  6. PREDNISONE [Concomitant]

REACTIONS (6)
  - Respiratory tract infection [Recovering/Resolving]
  - Asthma [Recovering/Resolving]
  - Fatigue [Not Recovered/Not Resolved]
  - Productive cough [Not Recovered/Not Resolved]
  - Drug dose omission [Unknown]
  - Product quality issue [Unknown]
